FAERS Safety Report 13774032 (Version 3)
Quarter: 2017Q4

REPORT INFORMATION
  Report Type: Report from Study
  Country: US (occurrence: US)
  Receive Date: 20170721
  Receipt Date: 20171107
  Transmission Date: 20180320
  Serious: Yes (Hospitalization)
  Sender: FDA-Public Use
  Company Number: PHHO2017US010484

PATIENT
  Age: 78 Year
  Sex: Female
  Weight: 80.2 kg

DRUGS (2)
  1. TRAMETINIB [Suspect]
     Active Substance: TRAMETINIB
     Indication: NON-SMALL CELL LUNG CANCER
     Dosage: 2 MG, QD (TOTAL DOSE ADMINISTERED 20 MG)
     Route: 048
     Dates: start: 20170525, end: 20170606
  2. DOCETAXEL. [Suspect]
     Active Substance: DOCETAXEL
     Indication: NON-SMALL CELL LUNG CANCER
     Dosage: 75 MG/M2, UNK (TOTAL ADMINISTERED DOSE 147.8 MG)
     Route: 042
     Dates: start: 20170525, end: 20170602

REACTIONS (2)
  - Lung infection [Recovering/Resolving]
  - Stomatitis [Recovering/Resolving]

NARRATIVE: CASE EVENT DATE: 20170608
